FAERS Safety Report 10409655 (Version 1)
Quarter: 2014Q3

REPORT INFORMATION
  Report Type: Spontaneous
  Country: US (occurrence: None)
  Receive Date: 20140825
  Receipt Date: 20140825
  Transmission Date: 20150326
  Serious: Yes (Disabling)
  Sender: FDA-Public Use
  Company Number: None

PATIENT
  Age: 76 Year
  Sex: Male
  Weight: 88.91 kg

DRUGS (1)
  1. SIMBRINZA [Suspect]
     Active Substance: BRIMONIDINE TARTRATE\BRINZOLAMIDE
     Indication: GLAUCOMA
     Dates: start: 20140808, end: 20140811

REACTIONS (10)
  - Asthenia [None]
  - Insomnia [None]
  - Ocular discomfort [None]
  - Photophobia [None]
  - Lacrimation increased [None]
  - Rash [None]
  - Heart rate increased [None]
  - Productive cough [None]
  - Skin exfoliation [None]
  - Eye pain [None]

NARRATIVE: CASE EVENT DATE: 20140808
